FAERS Safety Report 7406784-2 (Version None)
Quarter: 2011Q2

REPORT INFORMATION
  Report Type: 
  Country: None (occurrence: None)
  Receive Date: 20110411
  Receipt Date: 20110407
  Transmission Date: 20111010
  Serious: Yes (Death, Life-Threatening)
  Sender: FDA-Public Use
  Company Number: PHHY2011JP28597

PATIENT

DRUGS (4)
  1. CEFONICID [Concomitant]
  2. CIPROFLOXACIN HCL [Concomitant]
     Indication: PYREXIA
     Dosage: 300 MG, UNK
     Route: 042
     Dates: start: 20101120, end: 20101122
  3. VANCOMYCIN HYCHLORIDE [Suspect]
     Indication: PNEUMONIA STAPHYLOCOCCAL
     Dosage: 0.5 G, BID
     Route: 017
     Dates: start: 20101120, end: 20101123
  4. ZOSYN [Concomitant]
     Dosage: 2.25 G, UNK
     Dates: start: 20101123

REACTIONS (6)
  - DEVICE RELATED INFECTION [None]
  - INFECTIVE THROMBOSIS [None]
  - GENERAL PHYSICAL HEALTH DETERIORATION [None]
  - RENAL FAILURE ACUTE [None]
  - CIRCULATORY COLLAPSE [None]
  - CHOLANGITIS [None]
